FAERS Safety Report 10712968 (Version 1)
Quarter: 2015Q1

REPORT INFORMATION
  Report Type: Spontaneous
  Country: US (occurrence: None)
  Receive Date: 20150114
  Receipt Date: 20150114
  Transmission Date: 20150721
  Serious: Yes (Hospitalization, Disabling, Other)
  Sender: FDA-Public Use
  Company Number: None

PATIENT
  Age: 8 Year
  Sex: Female
  Weight: 26.31 kg

DRUGS (1)
  1. VIMPAT [Suspect]
     Active Substance: LACOSAMIDE
     Indication: SEIZURE
     Dosage: 1 PILL, ONCE DAILY
     Route: 048
     Dates: start: 20110801, end: 20141101

REACTIONS (2)
  - Status epilepticus [None]
  - Sleep disorder [None]

NARRATIVE: CASE EVENT DATE: 20141216
